FAERS Safety Report 6503920-7 (Version None)
Quarter: 2009Q4

REPORT INFORMATION
  Report Type: 
  Country: None (occurrence: None)
  Receive Date: 20091217
  Receipt Date: 20091214
  Transmission Date: 20100525
  Serious: Yes (Life-Threatening, Hospitalization)
  Sender: FDA-Public Use
  Company Number: US-MERCK-0901USA00359

PATIENT
  Age: 69 Year
  Sex: Female

DRUGS (12)
  1. JANUVIA [Suspect]
     Indication: DIABETES MELLITUS
     Route: 048
     Dates: start: 20080320, end: 20080501
  2. JANUVIA [Suspect]
     Route: 048
     Dates: start: 20080501, end: 20080604
  3. LANTUS [Concomitant]
     Route: 065
  4. BYETTA [Concomitant]
     Route: 065
  5. INSULIN HUMAN [Concomitant]
     Indication: BLOOD GLUCOSE INCREASED
     Route: 065
  6. ALLOPURINOL [Concomitant]
     Route: 065
  7. CLONIDINE [Concomitant]
     Route: 065
  8. COZAAR [Concomitant]
     Route: 048
  9. PROTONIX [Concomitant]
     Route: 065
  10. ESTRADIOL [Concomitant]
     Route: 065
  11. HUMALOG [Concomitant]
     Route: 065
     Dates: start: 20090717
  12. TUMS [Suspect]
     Route: 065

REACTIONS (12)
  - BLOOD CALCIUM INCREASED [None]
  - BLOOD POTASSIUM DECREASED [None]
  - CARDIAC FAILURE CONGESTIVE [None]
  - DEHYDRATION [None]
  - DIARRHOEA [None]
  - DISORIENTATION [None]
  - DRUG INEFFECTIVE [None]
  - HYPERSENSITIVITY [None]
  - RENAL FAILURE [None]
  - RENAL FAILURE ACUTE [None]
  - URINARY TRACT INFECTION [None]
  - WRONG TECHNIQUE IN DRUG USAGE PROCESS [None]
